FAERS Safety Report 11330333 (Version 1)
Quarter: 2015Q3

REPORT INFORMATION
  Report Type: Spontaneous
  Country: US (occurrence: None)
  Receive Date: 20150730
  Receipt Date: 20150730
  Transmission Date: 20151125
  Serious: Yes (Hospitalization)
  Sender: FDA-Public Use
  Company Number: None

PATIENT
  Age: 58 Year
  Sex: Female
  Weight: 59.42 kg

DRUGS (12)
  1. FOLIC ACID (FOLVITE) [Concomitant]
  2. OLOPATADINE (PATADAY) [Concomitant]
  3. HARVONI [Suspect]
     Active Substance: LEDIPASVIR\SOFOSBUVIR
     Indication: HEPATITIS C
     Dosage: HARVONI 90-400MG QD PO
     Route: 048
     Dates: start: 20150612
  4. CLINDAMYCIN-BENZOYL PAROXIDE (BENZACLIN) [Concomitant]
  5. CLOTRIMAZOLE (LOTRIMIN) [Concomitant]
  6. ERGOCALCIFEROL. [Concomitant]
     Active Substance: ERGOCALCIFEROL
  7. UREA (CARMOL) [Concomitant]
  8. L-MFOLATE-B6 PHOS-METHYL-B12 (L-METHYL-B6-B12) [Concomitant]
  9. NYSTATIN (MYCOSTATIN) [Concomitant]
  10. CAPSAICIN (ZOSTRIX) [Concomitant]
  11. DULOXETINE (CYMBALTA) [Concomitant]
  12. ECONAZOLE NITRATE (SPECTAZOLE) [Concomitant]

REACTIONS (3)
  - Urinary tract infection [None]
  - Vomiting [None]
  - Flank pain [None]

NARRATIVE: CASE EVENT DATE: 20150718
